FAERS Safety Report 9405423 (Version 1)
Quarter: 2013Q3

REPORT INFORMATION
  Report Type: Spontaneous
  Country: IT (occurrence: IT)
  Receive Date: 20130717
  Receipt Date: 20130717
  Transmission Date: 20140515
  Serious: Yes (Life-Threatening, Hospitalization)
  Sender: FDA-Public Use
  Company Number: IT-TEVA-418355ISR

PATIENT
  Age: 44 Year
  Sex: Male

DRUGS (1)
  1. DICLOFENAC [Suspect]
     Dosage: INTRAMUSCULAR INJECTION IN THE GLUTEAL REGION
     Route: 030

REACTIONS (2)
  - Embolia cutis medicamentosa [Unknown]
  - Necrotising fasciitis staphylococcal [Unknown]
